FAERS Safety Report 9624237 (Version 1)
Quarter: 2013Q4

REPORT INFORMATION
  Report Type: Spontaneous
  Country: US (occurrence: US)
  Receive Date: 20131015
  Receipt Date: 20131015
  Transmission Date: 20140711
  Serious: Yes (Death)
  Sender: FDA-Public Use
  Company Number: US-MALLINCKRODT-T201304553

PATIENT
  Sex: Male

DRUGS (1)
  1. GABLOFEN [Suspect]
     Indication: MUSCLE SPASTICITY
     Dosage: 525.1 MCG PER DAY
     Route: 037

REACTIONS (1)
  - Pneumonia aspiration [Fatal]
